FAERS Safety Report 13063973 (Version 1)
Quarter: 2016Q4

REPORT INFORMATION
  Report Type: Spontaneous
  Country: US (occurrence: US)
  Receive Date: 20161227
  Receipt Date: 20161227
  Transmission Date: 20170207
  Serious: No
  Sender: FDA-Public Use
  Company Number: US-PFIZER INC-2016594344

PATIENT
  Sex: Female

DRUGS (1)
  1. XELJANZ XR [Suspect]
     Active Substance: TOFACITINIB CITRATE
     Dosage: 11 MG TABLETS

REACTIONS (5)
  - Trigger finger [Unknown]
  - Fatigue [Unknown]
  - Insomnia [Unknown]
  - Myalgia [Unknown]
  - Paraesthesia [Unknown]
